FAERS Safety Report 8937858 (Version 1)
Quarter: 2012Q4

REPORT INFORMATION
  Report Type: Report from Study
  Country: BG (occurrence: BG)
  Receive Date: 20121130
  Receipt Date: 20121130
  Transmission Date: 20130627
  Serious: Yes (Other)
  Sender: FDA-Public Use
  Company Number: BG-ABBOTT-12P-022-0962359-00

PATIENT
  Age: 59 Year
  Sex: Male
  Weight: 70 kg

DRUGS (5)
  1. ZEMPLAR [Suspect]
     Indication: HYPERPARATHYROIDISM SECONDARY
     Route: 048
     Dates: start: 20120404
  2. ZEMPLAR [Suspect]
     Indication: RENAL FAILURE CHRONIC
  3. FOSINOPRIL [Concomitant]
     Indication: HYPERTENSION
     Route: 048
  4. EPOETIN ALFA [Concomitant]
     Indication: ANAEMIA
  5. GLICLAZIDE [Concomitant]
     Indication: DIABETES MELLITUS
     Route: 048

REACTIONS (5)
  - Nephropathy [Unknown]
  - Fluid overload [Unknown]
  - Cardiac failure congestive [Unknown]
  - Coronary artery disease [Unknown]
  - Blood creatinine abnormal [Recovered/Resolved with Sequelae]
